FAERS Safety Report 9707117 (Version 1)
Quarter: 2013Q4

REPORT INFORMATION
  Report Type: Spontaneous
  Country: JP (occurrence: JP)
  Receive Date: 20131125
  Receipt Date: 20131125
  Transmission Date: 20140711
  Serious: Yes (Death, Hospitalization)
  Sender: FDA-Public Use
  Company Number: JP-MYLANLABS-2013S1025626

PATIENT
  Age: 27 Year
  Sex: Female

DRUGS (2)
  1. BEVACIZUMAB [Suspect]
     Indication: BREAST CANCER STAGE IV
     Dosage: 10 MG/M2 ON DAYS 1 + 15
     Route: 050
  2. PACLITAXEL [Suspect]
     Indication: BREAST CANCER STAGE IV
     Dosage: 90 MG/M2 ON DAYS 1, 8 + 15
     Route: 050

REACTIONS (2)
  - Haemorrhagic tumour necrosis [Recovering/Resolving]
  - Respiratory failure [Fatal]
